FAERS Safety Report 19907445 (Version 1)
Quarter: 2021Q4

REPORT INFORMATION
  Report Type: Spontaneous
  Country: FR (occurrence: FR)
  Receive Date: 20211001
  Receipt Date: 20211001
  Transmission Date: 20220304
  Serious: Yes (Disabling)
  Sender: FDA-Public Use
  Company Number: None

PATIENT
  Age: 71 Year
  Sex: Female
  Weight: 43 kg

DRUGS (13)
  1. COMIRNATY [Suspect]
     Active Substance: TOZINAMERAN
     Indication: COVID-19 immunisation
     Dosage: DOSE 1, SINGLE
     Route: 030
     Dates: start: 20210910, end: 20210910
  2. OXALIPLATIN [Suspect]
     Active Substance: OXALIPLATIN
     Indication: Squamous cell carcinoma
     Dosage: 110 UG 1X/DAY
     Route: 041
     Dates: start: 20210824
  3. CISPLATIN [Suspect]
     Active Substance: CISPLATIN
     Dosage: 40 MG WEEKLY
     Route: 041
     Dates: start: 20210629, end: 20210728
  4. ALPRAZOLAM [Concomitant]
     Active Substance: ALPRAZOLAM
     Dosage: 0-0-1
  5. HUMIRA [Concomitant]
     Active Substance: ADALIMUMAB
  6. METHOTREXATE SODIUM [Concomitant]
     Active Substance: METHOTREXATE SODIUM
     Dosage: 1 AND A HALF TABLETS ON MONDAY
  7. FOLIC ACID [Concomitant]
     Active Substance: FOLIC ACID
  8. OMEPRAZOLE [Concomitant]
     Active Substance: OMEPRAZOLE
  9. LEVOTHYROXINE [Concomitant]
     Active Substance: LEVOTHYROXINE
  10. FEBUXOSTAT [Concomitant]
     Active Substance: FEBUXOSTAT
  11. OXAZEPAM [Concomitant]
     Active Substance: OXAZEPAM
  12. ALGINIC ACID\ALUMINUM HYDROXIDE\SODIUM BICARBONATE [Concomitant]
     Active Substance: ALGINIC ACID\ALUMINUM HYDROXIDE\SODIUM BICARBONATE
  13. LERCANIDIPINE HYDROCHLORIDE [Concomitant]
     Active Substance: LERCANIDIPINE HYDROCHLORIDE

REACTIONS (2)
  - Deafness bilateral [Not Recovered/Not Resolved]
  - Condition aggravated [Not Recovered/Not Resolved]

NARRATIVE: CASE EVENT DATE: 20210911
